FAERS Safety Report 9833188 (Version 2)
Quarter: 2014Q2

REPORT INFORMATION
  Report Type: Spontaneous
  Country: US (occurrence: US)
  Receive Date: 20140121
  Receipt Date: 20140625
  Transmission Date: 20141212
  Serious: Yes (Hospitalization)
  Sender: FDA-Public Use
  Company Number: US-PFIZER INC-2014013752

PATIENT
  Age: 62 Year
  Sex: Male

DRUGS (1)
  1. BENEFIX [Suspect]
     Indication: FACTOR IX DEFICIENCY
     Dosage: 7000 IU, 1X/DAY
     Dates: start: 20140103

REACTIONS (1)
  - Haemarthrosis [Unknown]
